FAERS Safety Report 6540102-7 (Version None)
Quarter: 2010Q1

REPORT INFORMATION
  Report Type: 
  Country: None (occurrence: None)
  Receive Date: 20100115
  Receipt Date: 20100108
  Transmission Date: 20100710
  Serious: Yes (Hospitalization, Other)
  Sender: FDA-Public Use
  Company Number: US-RB-000493-10

PATIENT
  Age: 17 Year
  Sex: Male

DRUGS (6)
  1. SUBOXONE [Suspect]
     Indication: DRUG USE FOR UNKNOWN INDICATION
     Dosage: DOSING INFORMATION IS UNKNOWN
     Route: 065
  2. IMITREX [Suspect]
     Indication: DRUG USE FOR UNKNOWN INDICATION
     Dosage: DOSING INFORMATION IS UNKNOWN.
     Route: 065
  3. VERAPAMIL [Suspect]
     Indication: DRUG USE FOR UNKNOWN INDICATION
     Dosage: DOSING INFORMATION IS UNKNOWN
     Route: 065
  4. VISTARIL [Suspect]
     Indication: ANXIETY
     Dosage: DOSING DETAILS UNKNOWN
     Route: 065
  5. CLOZAPINE [Suspect]
     Indication: ANXIETY
     Dosage: DOSING DETAILS UNKNOWN
     Route: 065
  6. AMBIEN [Suspect]
     Indication: INSOMNIA
     Dosage: DOSING DETAILS UNKNOWN
     Route: 065

REACTIONS (3)
  - ANXIETY [None]
  - INSOMNIA [None]
  - SUICIDE ATTEMPT [None]
